FAERS Safety Report 8041965-9 (Version None)
Quarter: 2012Q1

REPORT INFORMATION
  Report Type: 
  Country: None (occurrence: None)
  Receive Date: 20120112
  Receipt Date: 20120106
  Transmission Date: 20120608
  Serious: Yes (Life-Threatening, Hospitalization)
  Sender: FDA-Public Use
  Company Number: PHHY2012FR000885

PATIENT
  Sex: Female
  Weight: 50 kg

DRUGS (5)
  1. ZOLEDRONOC ACID [Suspect]
     Dosage: UNK UKN, UNK
     Route: 042
     Dates: start: 20110810
  2. LEVOTHYROXINE SODIUM [Concomitant]
     Dosage: UNK UKN, UNK
     Dates: start: 19900101
  3. PROPRANOLOL [Concomitant]
     Dosage: UNK UKN, UNK
     Dates: start: 20000101
  4. STEROGYL [Concomitant]
     Dosage: 15 MG, UNK
  5. TRAMADOL HCL [Concomitant]
     Dosage: UNK UKN, UNK
     Dates: start: 20070101

REACTIONS (9)
  - ABDOMINAL STRANGULATED HERNIA [None]
  - VASCULAR OCCLUSION [None]
  - VOMITING [None]
  - POST PROCEDURAL COMPLICATION [None]
  - LOSS OF CONSCIOUSNESS [None]
  - COMA [None]
  - PNEUMONIA ASPIRATION [None]
  - SEPTIC SHOCK [None]
  - RESPIRATORY DISORDER [None]
